FAERS Safety Report 8446388-6 (Version None)
Quarter: 2012Q2

REPORT INFORMATION
  Report Type: 
  Country: None (occurrence: None)
  Receive Date: 20120618
  Receipt Date: 20120608
  Transmission Date: 20120825
  Serious: Yes (Hospitalization)
  Sender: FDA-Public Use
  Company Number: IE-FRI-1000031450

PATIENT
  Age: 72 Year
  Sex: Female

DRUGS (4)
  1. CITALOPRAM HYDROBROMIDE [Suspect]
  2. BENDROFLUMETHIAZIDE [Suspect]
  3. LISINOPRIL [Suspect]
  4. LANSOPRAZOLE [Suspect]

REACTIONS (9)
  - POST PROCEDURAL COMPLICATION [None]
  - STATUS EPILEPTICUS [None]
  - FACIAL PARESIS [None]
  - NUCLEAR MAGNETIC RESONANCE IMAGING BRAIN ABNORMAL [None]
  - PERITONITIS [None]
  - GRAND MAL CONVULSION [None]
  - HEMIPARESIS [None]
  - BLOOD GLUCOSE INCREASED [None]
  - NO THERAPEUTIC RESPONSE [None]
